FAERS Safety Report 4554824-0 (Version None)
Quarter: 2004Q4

REPORT INFORMATION
  Report Type: 
  Country: None (occurrence: None)
  Receive Date: 20041227
  Receipt Date: 20040927
  Transmission Date: 20050328
  Serious: Yes (Other)
  Sender: FDA-Public Use
  Company Number: 2004-0007541

PATIENT
  Age: 57 Year
  Sex: Male
  Weight: 71.6683 kg

DRUGS (9)
  1. VIREAD [Suspect]
     Indication: HIV INFECTION
     Dosage: 300 MG, 1 IN 1 D, ORAL
     Route: 048
     Dates: start: 20011023, end: 20040728
  2. KALETRA [Concomitant]
  3. EFV (EFAVIRENZ) [Concomitant]
  4. ACYCLOVIR [Concomitant]
  5. DAPSONE [Concomitant]
  6. GLUCOPHAGE [Concomitant]
  7. KETOPROFEN [Concomitant]
  8. FOSAMAX [Concomitant]
  9. TESTOSTERONE [Concomitant]

REACTIONS (2)
  - BLOOD CREATININE INCREASED [None]
  - PROTEINURIA [None]
